FAERS Safety Report 8522897-6 (Version None)
Quarter: 2012Q3

REPORT INFORMATION
  Report Type: 
  Country: None (occurrence: None)
  Receive Date: 20120720
  Receipt Date: 20120712
  Transmission Date: 20120928
  Serious: Yes (Hospitalization)
  Sender: FDA-Public Use
  Company Number: US-BIOGENIDEC-2012BI023211

PATIENT
  Age: 65 Year
  Sex: Male

DRUGS (7)
  1. TYSABRI [Suspect]
     Indication: MULTIPLE SCLEROSIS
     Route: 042
     Dates: start: 20120419
  2. LYRICA [Concomitant]
     Indication: PAIN
     Route: 048
  3. MORPHINE SULFATE [Concomitant]
     Indication: PAIN
     Route: 048
  4. BUMETANIDE [Concomitant]
     Indication: OEDEMA
  5. BACLOFEN [Concomitant]
     Indication: MUSCLE SPASTICITY
  6. MIRALAX [Concomitant]
     Indication: CONSTIPATION
  7. MG CITRATE [Concomitant]
     Indication: CONSTIPATION

REACTIONS (1)
  - PNEUMONIA [None]
